FAERS Safety Report 8074318-8 (Version None)
Quarter: 2011Q4

REPORT INFORMATION
  Report Type: 
  Country: None (occurrence: None)
  Receive Date: 20111221
  Receipt Date: 20110412
  Transmission Date: 20120403
  Serious: Yes (Hospitalization, Disabling)
  Sender: FDA-Public Use
  Company Number: PHHY2011US30892

PATIENT
  Age: 62 Year
  Sex: Female

DRUGS (5)
  1. REMERON [Concomitant]
  2. RITALIN [Concomitant]
  3. EXJADE [Suspect]
     Indication: MALIGNANT CRANIAL NERVE NEOPLASM
     Dosage: 1000 MG, DAILY, ORAL ; 125 MG, QD, ORAL
     Route: 048
     Dates: start: 20110222
  4. ANZEMET [Concomitant]
  5. PROCHLORPERAZINE MALEATE [Concomitant]

REACTIONS (2)
  - NAUSEA [None]
  - NEOPLASM MALIGNANT [None]
